FAERS Safety Report 6075836-4 (Version None)
Quarter: 2009Q1

REPORT INFORMATION
  Report Type: 
  Country: None (occurrence: None)
  Receive Date: 20090212
  Receipt Date: 20090202
  Transmission Date: 20090719
  Serious: Yes (Other)
  Sender: FDA-Public Use
  Company Number: US-JNJFOC-20090200936

PATIENT

DRUGS (2)
  1. REMICADE [Suspect]
     Indication: PSORIASIS
     Dosage: 4TH INFUSION
     Route: 042
  2. REMICADE [Suspect]
     Indication: PSORIATIC ARTHROPATHY
     Dosage: INFUSIONS 1 TO 3
     Route: 042

REACTIONS (2)
  - HYPERSENSITIVITY [None]
  - LUPUS-LIKE SYNDROME [None]
